FAERS Safety Report 4599961-X (Version None)
Quarter: 2005Q1

REPORT INFORMATION
  Report Type: 
  Country: None (occurrence: None)
  Receive Date: 20050303
  Receipt Date: 20050223
  Transmission Date: 20050727
  Serious: Yes (Hospitalization)
  Sender: FDA-Public Use
  Company Number: 2005-00681

PATIENT
  Age: 46 Year
  Sex: Female

DRUGS (11)
  1. ACYCLOVIR [Suspect]
     Dosage: 5 MG/KG, DAILY, INTRAVENOUS
     Route: 042
  2. LOPINAVIR + RITONAVIR [Concomitant]
  3. EFAVIRENZ (EFAVIRENZ) [Concomitant]
  4. LAMIVUDINE [Concomitant]
  5. VALACYCLOVIR HCL [Concomitant]
  6. GABAPENTIN [Concomitant]
  7. PANTOPRAZOLE (PANTOPRAZOLE) [Concomitant]
  8. AMLODIPINE (AMLODIPINE) [Concomitant]
  9. NEPHROCAPS [Concomitant]
  10. SEVELAMER (SEVELAMER) [Concomitant]
  11. ERYTHROPOIETIN (ERYTHROPOIETIN) [Concomitant]

REACTIONS (5)
  - DELIRIUM [None]
  - DRUG LEVEL INCREASED [None]
  - HYPOXIA [None]
  - NEUROTOXICITY [None]
  - RESPIRATORY DEPRESSION [None]
